FAERS Safety Report 11437277 (Version 1)
Quarter: 2015Q3

REPORT INFORMATION
  Report Type: Spontaneous
  Country: US (occurrence: US)
  Receive Date: 20150821
  Receipt Date: 20150821
  Transmission Date: 20151125
  Serious: No
  Sender: FDA-Public Use
  Company Number: US-ELI_LILLY_AND_COMPANY-US200703006512

PATIENT
  Age: 55 Year
  Sex: Male

DRUGS (2)
  1. ATIVAN [Concomitant]
     Active Substance: LORAZEPAM
  2. CYMBALTA [Suspect]
     Active Substance: DULOXETINE HYDROCHLORIDE
     Indication: DEPRESSION
     Dosage: 60 MG, DAILY (1/D)
     Dates: start: 200603

REACTIONS (3)
  - Dry skin [Unknown]
  - Dry eye [Unknown]
  - Pruritus [Unknown]
